FAERS Safety Report 21461549 (Version 3)
Quarter: 2022Q4

REPORT INFORMATION
  Report Type: Report from Study
  Country: US (occurrence: US)
  Receive Date: 20221015
  Receipt Date: 20221227
  Transmission Date: 20230112
  Serious: Yes (Other)
  Sender: FDA-Public Use
  Company Number: US-ABBVIE-4136386

PATIENT
  Age: 57 Year
  Sex: Female

DRUGS (8)
  1. IMBRUVICA [Suspect]
     Active Substance: IBRUTINIB
     Indication: Chronic lymphocytic leukaemia
     Dosage: 3 CAPSULE
     Route: 048
     Dates: start: 201705
  2. IMBRUVICA [Suspect]
     Active Substance: IBRUTINIB
     Indication: Chronic lymphocytic leukaemia
     Dosage: FREQUENCY TEXT: CHANGE DOSE FROM 3 CAPSULE TO 2 CAPSULE
     Route: 048
  3. IMBRUVICA [Suspect]
     Active Substance: IBRUTINIB
     Indication: Chronic lymphocytic leukaemia
     Dosage: FREQUENCY TEXT: CHANGE DOSE FROM 3 CAPSULE TO 2 CAPSULE
     Route: 048
  4. IMBRUVICA [Suspect]
     Active Substance: IBRUTINIB
     Indication: Chronic lymphocytic leukaemia
     Dosage: 2 TABLET
     Route: 048
  5. IMBRUVICA [Suspect]
     Active Substance: IBRUTINIB
     Indication: Chronic lymphocytic leukaemia
     Dosage: 3 TABLET
     Route: 048
  6. MODERNA COVID-19 VACCINE [Concomitant]
     Active Substance: ELASOMERAN
     Indication: COVID-19 immunisation
     Dosage: 1ST DOSE
     Route: 030
  7. MODERNA COVID-19 VACCINE [Concomitant]
     Active Substance: ELASOMERAN
     Indication: COVID-19 immunisation
     Dosage: 2ND DOSE
     Route: 030
  8. MODERNA COVID-19 VACCINE [Concomitant]
     Active Substance: ELASOMERAN
     Indication: COVID-19 immunisation
     Dosage: 3RD BOOSTER DOSE
     Route: 030

REACTIONS (22)
  - Renal failure [Unknown]
  - Epistaxis [Recovered/Resolved]
  - Adverse drug reaction [Unknown]
  - Abdominal pain upper [Unknown]
  - Diplopia [Unknown]
  - Muscle spasms [Unknown]
  - Tendon rupture [Unknown]
  - Contusion [Unknown]
  - Dizziness [Unknown]
  - Epistaxis [Recovered/Resolved]
  - Neck mass [Unknown]
  - Epistaxis [Unknown]
  - Stress [Unknown]
  - COVID-19 [Recovering/Resolving]
  - Somnolence [Unknown]
  - Unevaluable event [Unknown]
  - Haemoglobin decreased [Unknown]
  - Weight increased [Unknown]
  - Sneezing [Unknown]
  - Renal impairment [Unknown]
  - Upper-airway cough syndrome [Unknown]
  - Hypophagia [Unknown]

NARRATIVE: CASE EVENT DATE: 20170501
